FAERS Safety Report 10005513 (Version 12)
Quarter: 2018Q4

REPORT INFORMATION
  Report Type: Spontaneous
  Country: BR (occurrence: BR)
  Receive Date: 20140313
  Receipt Date: 20181115
  Transmission Date: 20190204
  Serious: Yes (Other)
  Sender: FDA-Public Use
  Company Number: BR-AMGEN-BRASP2012013548

PATIENT
  Age: 55 Year
  Sex: Female
  Weight: 67 kg

DRUGS (11)
  1. LEFLUNOMIDE. [Concomitant]
     Active Substance: LEFLUNOMIDE
     Indication: RHEUMATOID ARTHRITIS
     Dosage: 20 MG, ONCE TABLET ONCE DAILY
     Dates: start: 2010
  2. ATENOLOL. [Concomitant]
     Active Substance: ATENOLOL
     Indication: HEART RATE INCREASED
     Dosage: 50 MG (TWO TABLETS OF 25MG) ONCE DAILY
     Dates: start: 2011
  3. ENBREL [Suspect]
     Active Substance: ETANERCEPT
     Dosage: 1 DF, WEEKLY
     Route: 065
  4. ENBREL [Suspect]
     Active Substance: ETANERCEPT
     Indication: RHEUMATOID ARTHRITIS
     Dosage: 50 MG, ONCE WEEKLY
     Route: 058
     Dates: start: 201201, end: 20140211
  5. ARAVA [Concomitant]
     Active Substance: LEFLUNOMIDE
     Dosage: UNK
  6. ENBREL [Suspect]
     Active Substance: ETANERCEPT
     Dosage: 50 MG, ONCE WEEKLY (EVERY THURSDAY)
     Route: 065
  7. ENBREL [Suspect]
     Active Substance: ETANERCEPT
     Dosage: UNK
     Route: 065
     Dates: start: 20120215
  8. FOLIC ACID. [Concomitant]
     Active Substance: FOLIC ACID
     Indication: RHEUMATOID ARTHRITIS
     Dosage: 10 MG (TWO TABLETS OF 5MG), TWICE WEEKLY
     Dates: start: 2010
  9. DAFLON [Concomitant]
     Indication: CARDIOVASCULAR DISORDER
     Dosage: 1000 MG (TWO TABLETS OF 500 MG) ONCE DAILY
     Dates: start: 2011
  10. ENBREL [Suspect]
     Active Substance: ETANERCEPT
     Dosage: UNK
     Route: 065
     Dates: start: 20120112, end: 2012
  11. METHOTREXATE. [Concomitant]
     Active Substance: METHOTREXATE
     Indication: RHEUMATOID ARTHRITIS
     Dosage: 20 MG, ONE TABLET TWICE WEEKLY
     Dates: start: 2010

REACTIONS (12)
  - Weight increased [Not Recovered/Not Resolved]
  - Pyrexia [Unknown]
  - Rash macular [Unknown]
  - Arthralgia [Not Recovered/Not Resolved]
  - Pain [Not Recovered/Not Resolved]
  - Wrong technique in product usage process [Unknown]
  - Injection site pain [Unknown]
  - Pruritus [Unknown]
  - Osteoarthritis [Unknown]
  - Headache [Unknown]
  - Feeling hot [Unknown]
  - Dengue fever [Unknown]

NARRATIVE: CASE EVENT DATE: 20120209
